FAERS Safety Report 9066170 (Version 1)
Quarter: 2013Q1

REPORT INFORMATION
  Report Type: Spontaneous
  Country: FR (occurrence: FR)
  Receive Date: 20130214
  Receipt Date: 20130214
  Transmission Date: 20140127
  Serious: Yes (Hospitalization)
  Sender: FDA-Public Use
  Company Number: FR-SANOFI-AVENTIS-2013SA012367

PATIENT
  Age: 1 Day
  Sex: Male

DRUGS (3)
  1. RIFADINE [Suspect]
     Indication: MATERNAL EXPOSURE TIMING UNSPECIFIED
     Route: 064
     Dates: start: 201205, end: 201212
  2. RIMIFON [Suspect]
     Indication: MATERNAL EXPOSURE TIMING UNSPECIFIED
     Route: 064
     Dates: start: 201205, end: 201212
  3. DEXAMBUTOL [Suspect]
     Indication: MATERNAL EXPOSURE TIMING UNSPECIFIED
     Dosage: DOSE:2 UNIT(S)
     Route: 064
     Dates: start: 201205, end: 201212

REACTIONS (4)
  - Haemangioma of liver [Unknown]
  - Neonatal hepatomegaly [Unknown]
  - Gamma-glutamyltransferase increased [Unknown]
  - Foetal exposure during pregnancy [Unknown]
